FAERS Safety Report 4553083-2 (Version None)
Quarter: 2005Q1

REPORT INFORMATION
  Report Type: 
  Country: None (occurrence: None)
  Receive Date: 20050114
  Receipt Date: 20050104
  Transmission Date: 20050727
  Serious: Yes (Other)
  Sender: FDA-Public Use
  Company Number: US-JNJFOC-20050101101

PATIENT
  Age: 37 Year
  Sex: Female
  Weight: 51.26 kg

DRUGS (7)
  1. TOPAMAX [Suspect]
     Indication: MIGRAINE PROPHYLAXIS
     Route: 049
  2. FIORCET [Concomitant]
  3. FIORCET [Concomitant]
  4. FIORCET [Concomitant]
     Indication: HEADACHE
  5. ESTRADIOL [Concomitant]
     Indication: HORMONE REPLACEMENT THERAPY
  6. PRIMEDONE [Concomitant]
     Indication: ESSENTIAL TREMOR
  7. ^VERA^ [Concomitant]
     Indication: PALPITATIONS

REACTIONS (8)
  - ALOPECIA [None]
  - AMNESIA [None]
  - ANAEMIA [None]
  - ANOREXIA [None]
  - CONFUSIONAL STATE [None]
  - HAIR TEXTURE ABNORMAL [None]
  - MALNUTRITION [None]
  - WEIGHT DECREASED [None]
